FAERS Safety Report 5546829-8 (Version None)
Quarter: 2007Q4

REPORT INFORMATION
  Report Type: 
  Country: None (occurrence: None)
  Receive Date: 20071211
  Receipt Date: 20071129
  Transmission Date: 20080405
  Serious: Yes (Other)
  Sender: FDA-Public Use
  Company Number: CH-PFIZER INC-2007100015

PATIENT
  Sex: Female

DRUGS (4)
  1. MYCOBUTIN [Suspect]
     Indication: PULMONARY TUBERCULOSIS
     Route: 048
     Dates: start: 20050815, end: 20051005
  2. KLACID [Interacting]
     Indication: PULMONARY TUBERCULOSIS
     Route: 048
  3. MYAMBUTOL [Concomitant]
     Route: 048
     Dates: start: 20050720, end: 20050815
  4. TARIVID ORAL [Concomitant]
     Route: 048

REACTIONS (3)
  - EYE PAIN [None]
  - UVEITIS [None]
  - VISUAL ACUITY REDUCED [None]
